FAERS Safety Report 16821970 (Version 4)
Quarter: 2019Q4

REPORT INFORMATION
  Report Type: Spontaneous
  Country: JP (occurrence: JP)
  Receive Date: 20190918
  Receipt Date: 20191211
  Transmission Date: 20200122
  Serious: Yes (Hospitalization)
  Sender: FDA-Public Use
  Company Number: JP-AMGEN-JPNSP2019154181

PATIENT
  Age: 8 Decade
  Sex: Female

DRUGS (38)
  1. RESTAMIN [DIPHENHYDRAMINE HYDROCHLORIDE] [Concomitant]
     Dosage: 50 MILLIGRAM
     Route: 048
     Dates: start: 20190723, end: 20190723
  2. ISOTONIC SODIUM CHLORIDE SOLUTION [Concomitant]
     Active Substance: SODIUM CHLORIDE
     Dosage: 50 MILLILITER
     Route: 041
     Dates: start: 20190703, end: 20190703
  3. DOCETAXEL. [Concomitant]
     Active Substance: DOCETAXEL
     Dosage: 94 MILLIGRAM
     Route: 041
     Dates: start: 20190903, end: 20190903
  4. G-LASTA [Suspect]
     Active Substance: PEGFILGRASTIM
     Indication: COLONY STIMULATING FACTOR THERAPY
     Dosage: 3.6 MILLIGRAM
     Route: 058
     Dates: start: 20190814, end: 20190814
  5. ALFAROL [Concomitant]
     Active Substance: ALFACALCIDOL
     Indication: OSTEOPOROSIS
     Dosage: 1 MICROGRAM, QD
     Route: 048
  6. RESTAMIN [DIPHENHYDRAMINE HYDROCHLORIDE] [Concomitant]
     Dosage: 50 MILLIGRAM
     Route: 048
     Dates: start: 20190903, end: 20190903
  7. DEXART [Concomitant]
     Active Substance: DEXAMETHASONE SODIUM PHOSPHATE
     Dosage: 19.8 MILLIGRAM
     Route: 041
     Dates: start: 20190903, end: 20190903
  8. ISOTONIC SODIUM CHLORIDE SOLUTION [Concomitant]
     Active Substance: SODIUM CHLORIDE
     Dosage: 100 MILLILITER
     Route: 041
     Dates: start: 20190813, end: 20190813
  9. ISOTONIC SODIUM CHLORIDE SOLUTION [Concomitant]
     Active Substance: SODIUM CHLORIDE
     Dosage: 100 MILLILITER
     Route: 041
     Dates: start: 20190903, end: 20190903
  10. GLUCOSE [Concomitant]
     Active Substance: DEXTROSE
     Indication: PRODUCT USED FOR UNKNOWN INDICATION
     Dosage: 250 MILLILITER
     Route: 041
     Dates: start: 20190703, end: 20190703
  11. GLUCOSE [Concomitant]
     Active Substance: DEXTROSE
     Dosage: 250 MILLILITER
     Route: 041
     Dates: start: 20190723, end: 20190723
  12. DOCETAXEL. [Concomitant]
     Active Substance: DOCETAXEL
     Dosage: 94 MILLIGRAM
     Route: 041
     Dates: start: 20190813, end: 20190813
  13. G-LASTA [Suspect]
     Active Substance: PEGFILGRASTIM
     Dosage: 3.6 MILLIGRAM
     Route: 058
     Dates: start: 20190904, end: 20190904
  14. ALOXI [Concomitant]
     Active Substance: PALONOSETRON HYDROCHLORIDE
     Dosage: 0.75 MILLIGRAM
     Route: 041
     Dates: start: 20190813, end: 20190813
  15. DEXART [Concomitant]
     Active Substance: DEXAMETHASONE SODIUM PHOSPHATE
     Dosage: 19.8 MILLIGRAM
     Route: 041
     Dates: start: 20190813, end: 20190813
  16. ISOTONIC SODIUM CHLORIDE SOLUTION [Concomitant]
     Active Substance: SODIUM CHLORIDE
     Indication: PRODUCT USED FOR UNKNOWN INDICATION
     Dosage: 50 MILLILITER
     Route: 041
     Dates: start: 20190703, end: 20190703
  17. ISOTONIC SODIUM CHLORIDE SOLUTION [Concomitant]
     Active Substance: SODIUM CHLORIDE
     Dosage: 100 MILLILITER
     Route: 041
     Dates: start: 20190723, end: 20190723
  18. GLUCOSE [Concomitant]
     Active Substance: DEXTROSE
     Dosage: 250 MILLILITER
     Route: 041
     Dates: start: 20190903, end: 20190903
  19. DOCETAXEL. [Concomitant]
     Active Substance: DOCETAXEL
     Indication: BREAST CANCER
     Dosage: 94 MILLIGRAM
     Route: 041
     Dates: start: 20190703, end: 20190703
  20. THYRADIN S [Concomitant]
     Active Substance: LEVOTHYROXINE SODIUM
     Indication: HYPOTHYROIDISM
     Dosage: 125 MICROGRAM, QD
     Route: 048
  21. LOSARTAN POTASSIUM. [Concomitant]
     Active Substance: LOSARTAN POTASSIUM
     Indication: HYPERTENSION
     Dosage: 25 MILLIGRAM, QD
     Route: 048
  22. DECADRON [Concomitant]
     Active Substance: DEXAMETHASONE
     Indication: PROPHYLAXIS OF NAUSEA AND VOMITING
     Dosage: 8 MILLIGRAM, BID
     Route: 048
     Dates: start: 20190704, end: 20190906
  23. DOMPERIDONE [Concomitant]
     Active Substance: DOMPERIDONE
     Indication: PRODUCT USED FOR UNKNOWN INDICATION
     Dosage: 90 MILLIGRAM, TID
     Route: 048
     Dates: start: 20190704, end: 20190907
  24. RESTAMIN [DIPHENHYDRAMINE HYDROCHLORIDE] [Concomitant]
     Indication: PRODUCT USED FOR UNKNOWN INDICATION
     Dosage: 50 MILLIGRAM
     Route: 048
     Dates: start: 20190703, end: 20190703
  25. DEXART [Concomitant]
     Active Substance: DEXAMETHASONE SODIUM PHOSPHATE
     Indication: PRODUCT USED FOR UNKNOWN INDICATION
     Dosage: 19.8 MILLIGRAM
     Route: 041
     Dates: start: 20190703, end: 20190703
  26. GLUCOSE [Concomitant]
     Active Substance: DEXTROSE
     Dosage: 250 MILLILITER
     Route: 041
     Dates: start: 20190813, end: 20190813
  27. ENDOXAN [CYCLOPHOSPHAMIDE] [Concomitant]
     Active Substance: CYCLOPHOSPHAMIDE
     Dosage: 940 MILLIGRAM
     Route: 041
     Dates: start: 20190723, end: 20190723
  28. ENDOXAN [CYCLOPHOSPHAMIDE] [Concomitant]
     Active Substance: CYCLOPHOSPHAMIDE
     Indication: BREAST CANCER
     Dosage: 940 MILLIGRAM
     Route: 041
     Dates: start: 20190703, end: 20190703
  29. ROSUVASTATIN [ROSUVASTATIN CALCIUM] [Concomitant]
     Active Substance: ROSUVASTATIN CALCIUM
     Indication: HYPERLIPIDAEMIA
     Dosage: 5 MG, QD
     Route: 048
  30. LORAZEPAM. [Concomitant]
     Active Substance: LORAZEPAM
     Indication: ANXIETY DISORDER
     Dosage: 1 MILLIGRAM, BID
     Route: 048
     Dates: start: 20190723, end: 20190903
  31. RESTAMIN [DIPHENHYDRAMINE HYDROCHLORIDE] [Concomitant]
     Dosage: 50 MILLIGRAM
     Route: 048
     Dates: start: 20190813, end: 20190813
  32. ALOXI [Concomitant]
     Active Substance: PALONOSETRON HYDROCHLORIDE
     Dosage: 0.75 MILLIGRAM
     Route: 041
     Dates: start: 20190723, end: 20190723
  33. ALOXI [Concomitant]
     Active Substance: PALONOSETRON HYDROCHLORIDE
     Dosage: 0.75 MILLIGRAM
     Route: 041
     Dates: start: 20190903, end: 20190903
  34. DEXART [Concomitant]
     Active Substance: DEXAMETHASONE SODIUM PHOSPHATE
     Dosage: 19.8 MILLIGRAM
     Route: 041
     Dates: start: 20190723, end: 20190723
  35. DOCETAXEL. [Concomitant]
     Active Substance: DOCETAXEL
     Dosage: 94 MILLIGRAM
     Route: 041
     Dates: start: 20190723, end: 20190723
  36. ENDOXAN [CYCLOPHOSPHAMIDE] [Concomitant]
     Active Substance: CYCLOPHOSPHAMIDE
     Dosage: 940 MILLIGRAM
     Route: 041
     Dates: start: 20190813, end: 20190813
  37. ALOXI [Concomitant]
     Active Substance: PALONOSETRON HYDROCHLORIDE
     Indication: PRODUCT USED FOR UNKNOWN INDICATION
     Dosage: 0.75 MILLIGRAM
     Route: 041
     Dates: start: 20190703, end: 20190703
  38. ENDOXAN [CYCLOPHOSPHAMIDE] [Concomitant]
     Active Substance: CYCLOPHOSPHAMIDE
     Dosage: 940 MILLIGRAM
     Route: 041
     Dates: start: 20190903, end: 20190903

REACTIONS (1)
  - Hypocalcaemia [Recovered/Resolved]

NARRATIVE: CASE EVENT DATE: 20190905
